FAERS Safety Report 7778428-1 (Version None)
Quarter: 2011Q3

REPORT INFORMATION
  Report Type: 
  Country: None (occurrence: None)
  Receive Date: 20110926
  Receipt Date: 20110919
  Transmission Date: 20111222
  Serious: Yes (Other)
  Sender: FDA-Public Use
  Company Number: US-GLAXOSMITHKLINE-A0945170A

PATIENT
  Age: 37 Year
  Sex: Male

DRUGS (3)
  1. ACCUPRIL [Concomitant]
  2. CARVEDILOL [Concomitant]
  3. PAXIL [Suspect]
     Indication: DEPRESSION
     Dosage: 20MG PER DAY
     Route: 048
     Dates: start: 20110812, end: 20110909

REACTIONS (2)
  - CONDITION AGGRAVATED [None]
  - PSORIASIS [None]
